FAERS Safety Report 9928960 (Version 1)
Quarter: 2014Q1

REPORT INFORMATION
  Report Type: Spontaneous
  Country: US (occurrence: None)
  Receive Date: 20140225
  Receipt Date: 20140225
  Transmission Date: 20141002
  Serious: Yes (Hospitalization, Disabling, Other)
  Sender: FDA-Public Use
  Company Number: 2014P1001293

PATIENT
  Age: 63 Year
  Sex: Female
  Weight: 97.98 kg

DRUGS (21)
  1. PLAQUENIL TABLET [Suspect]
     Indication: RHEUMATOID ARTHRITIS
  2. XELJANZ [Suspect]
     Route: 048
     Dates: start: 201309
  3. IBUPROFEN [Suspect]
     Indication: RHEUMATOID ARTHRITIS
     Dosage: PRN
  4. ORENCIA [Suspect]
     Indication: RHEUMATOID ARTHRITIS
  5. SPIRONOLACTONE [Concomitant]
  6. PREMARIN [Concomitant]
  7. ASPIRIN [Concomitant]
  8. HYDROCONE [Concomitant]
  9. KLOR-CON [Concomitant]
  10. PREDNISONE [Concomitant]
  11. METHOTREXATE [Concomitant]
  12. FOLIC ACID [Concomitant]
  13. DIOVAN [Concomitant]
  14. LASIX [Concomitant]
  15. TOPROL [Concomitant]
  16. METHOTREXATE [Concomitant]
  17. FOLIC ACID [Concomitant]
  18. DIOVAN [Concomitant]
  19. LASIX [Concomitant]
  20. TOPROL XL [Concomitant]
  21. PLAVIX [Concomitant]

REACTIONS (32)
  - Gastrointestinal disorder [None]
  - Thrombosis [None]
  - Drug interaction [None]
  - Synovitis [None]
  - Musculoskeletal stiffness [None]
  - Tachyarrhythmia [None]
  - Atrial fibrillation [None]
  - Activities of daily living impaired [None]
  - Weight increased [None]
  - Fatigue [None]
  - Night sweats [None]
  - Wrist deformity [None]
  - Arthralgia [None]
  - Feeling abnormal [None]
  - Muscular weakness [None]
  - Muscle spasms [None]
  - Gastrooesophageal reflux disease [None]
  - Varicose vein [None]
  - Hypoaesthesia [None]
  - Paraesthesia [None]
  - Joint swelling [None]
  - Alopecia [None]
  - Joint range of motion decreased [None]
  - Muscle atrophy [None]
  - Grip strength decreased [None]
  - Inflammation [None]
  - Urethral disorder [None]
  - Renal failure [None]
  - Urinary retention [None]
  - Drug effect decreased [None]
  - Cardiac failure congestive [None]
  - Condition aggravated [None]
